FAERS Safety Report 6231427-3 (Version None)
Quarter: 2009Q2

REPORT INFORMATION
  Report Type: 
  Country: None (occurrence: None)
  Receive Date: 20090611
  Receipt Date: 20090529
  Transmission Date: 20091009
  Serious: Yes (Other)
  Sender: FDA-Public Use
  Company Number: 1000006648

PATIENT
  Age: 54 Year
  Sex: Male
  Weight: 77 kg

DRUGS (4)
  1. CITALOPRAM HYDROBROMIDE [Suspect]
     Indication: DEPRESSION
     Dosage: 20 MG (20 MG, 1 IN 1 D), ORAL
     Route: 048
     Dates: start: 20090218, end: 20090225
  2. TEGRETOL [Suspect]
     Indication: BIPOLAR DISORDER
     Dosage: 400 MG (400 MG, 1 IN 1 D), ORAL
     Route: 048
     Dates: start: 20081126, end: 20090101
  3. TEGRETOL [Suspect]
     Indication: BIPOLAR DISORDER
     Dosage: 800 MG (400 MG, 2 IN 1 D), ORAL
     Route: 048
     Dates: start: 20090101, end: 20090226
  4. RAMIPRIL [Suspect]
     Indication: HYPERTENSION
     Dosage: 10 MG (5 MG, 2 IN 1 D), ORAL
     Route: 048
     Dates: start: 20081204, end: 20090226

REACTIONS (3)
  - DEPRESSION [None]
  - DRUG ERUPTION [None]
  - HYPERTENSION [None]
